FAERS Safety Report 6211802-3 (Version None)
Quarter: 2009Q2

REPORT INFORMATION
  Report Type: 
  Country: None (occurrence: None)
  Receive Date: 20090528
  Receipt Date: 20090515
  Transmission Date: 20091009
  Serious: Yes (Other)
  Sender: FDA-Public Use
  Company Number: 1000006326

PATIENT
  Age: 29 Year
  Sex: Male

DRUGS (6)
  1. ESCITALOPRAM [Suspect]
     Indication: ANXIETY
     Dosage: 20 MG (20 MG, 1 IN 1 D), ORAL
     Route: 048
     Dates: start: 20040101, end: 20080101
  2. ESCITALOPRAM [Suspect]
     Indication: PANIC DISORDER
     Dosage: 20 MG (20 MG, 1 IN 1 D), ORAL
     Route: 048
     Dates: start: 20040101, end: 20080101
  3. ESCITALOPRAM [Suspect]
     Indication: ANXIETY
     Dosage: 20 MG (20 MG, 1 IN 1 D), ORAL
     Route: 048
  4. ESCITALOPRAM [Suspect]
     Indication: PANIC DISORDER
     Dosage: 20 MG (20 MG, 1 IN 1 D), ORAL
     Route: 048
  5. REMERON [Concomitant]
  6. XANOR (TABLETS) [Concomitant]

REACTIONS (10)
  - ABDOMINAL PAIN UPPER [None]
  - DRUG WITHDRAWAL SYNDROME [None]
  - HEADACHE [None]
  - INSOMNIA [None]
  - NAUSEA [None]
  - PARAESTHESIA [None]
  - PILOERECTION [None]
  - SENSORY DISTURBANCE [None]
  - SEXUAL DYSFUNCTION [None]
  - SUICIDAL IDEATION [None]
